FAERS Safety Report 8105839-7 (Version None)
Quarter: 2012Q1

REPORT INFORMATION
  Report Type: 
  Country: None (occurrence: None)
  Receive Date: 20120202
  Receipt Date: 20120125
  Transmission Date: 20120608
  Serious: Yes (Other)
  Sender: FDA-Public Use
  Company Number: DE-BRISTOL-MYERS SQUIBB COMPANY-16367096

PATIENT
  Age: 71 Year
  Sex: Male

DRUGS (4)
  1. CHOLESTYRAMINE [Concomitant]
  2. ORENCIA [Suspect]
     Indication: RHEUMATOID ARTHRITIS
     Route: 042
     Dates: start: 20110801
  3. CORTISONE ACETATE [Concomitant]
     Dosage: 1DF:3 VIALS
     Dates: start: 20111013
  4. ARAVA [Suspect]

REACTIONS (1)
  - LIVER FUNCTION TEST ABNORMAL [None]
